FAERS Safety Report 14670753 (Version 1)
Quarter: 2018Q1

REPORT INFORMATION
  Report Type: Spontaneous
  Country: FR (occurrence: FR)
  Receive Date: 20180322
  Receipt Date: 20180322
  Transmission Date: 20180509
  Serious: Yes (Hospitalization)
  Sender: FDA-Public Use
  Company Number: FR-TEVA-2018-FR-869430

PATIENT
  Sex: Female

DRUGS (3)
  1. LOXEN L P 50 MG, GELULE A LIBERATION PROLONGEE [Suspect]
     Active Substance: NICARDIPINE HYDROCHLORIDE
     Indication: WRONG PATIENT RECEIVED MEDICATION
     Route: 048
  2. LOSARTAN POTASSIQUE [Suspect]
     Active Substance: LOSARTAN POTASSIUM
     Indication: WRONG PATIENT RECEIVED MEDICATION
     Route: 048
  3. CELIPROLOL [Suspect]
     Active Substance: CELIPROLOL
     Indication: WRONG PATIENT RECEIVED MEDICATION
     Route: 048

REACTIONS (2)
  - Wrong patient received medication [Recovered/Resolved]
  - Hypotension [Recovered/Resolved]
